FAERS Safety Report 5312826-0 (Version None)
Quarter: 2007Q1

REPORT INFORMATION
  Report Type: 
  Country: None (occurrence: None)
  Receive Date: 20070201
  Receipt Date: 20061116
  Transmission Date: 20070707
  Serious: No
  Sender: FDA-Public Use
  Company Number: 258157

PATIENT
  Age: 62 Year
  Sex: Male
  Weight: 131.5 kg

DRUGS (4)
  1. LEVEMIR [Suspect]
     Indication: INSULIN-REQUIRING TYPE II DIABETES MELLITUS
     Dosage: 100 IU,QD,SUBCUTANEOUS
     Route: 058
     Dates: start: 20061001, end: 20061031
  2. GLUCOPHAGE/00082701/(METFORMIN) [Concomitant]
  3. ACTOS  /01460201/ (PIOGLITAZONE) [Concomitant]
  4. ANTIBIOTICS [Concomitant]

REACTIONS (1)
  - HYPERSENSITIVITY [None]
